FAERS Safety Report 5014719-5 (Version None)
Quarter: 2006Q2

REPORT INFORMATION
  Report Type: 
  Country: None (occurrence: None)
  Receive Date: 20060531
  Receipt Date: 20060523
  Transmission Date: 20061013
  Serious: Yes (Other)
  Sender: FDA-Public Use
  Company Number: AR-GLAXOSMITHKLINE-A0607289A

PATIENT
  Age: 67 Year
  Sex: Male

DRUGS (3)
  1. SERETIDE [Suspect]
     Indication: ASTHMA
     Route: 055
     Dates: start: 20060520
  2. IBUPROFEN [Concomitant]
  3. AMLODIPINE BESYLATE AND BENAZEPRIL HCL [Concomitant]

REACTIONS (1)
  - URINARY INCONTINENCE [None]
